FAERS Safety Report 4614680-9 (Version None)
Quarter: 2005Q2

REPORT INFORMATION
  Report Type: 
  Country: None (occurrence: None)
  Receive Date: 20050311
  Receipt Date: 20050121
  Transmission Date: 20051028
  Serious: No
  Sender: FDA-Public Use
  Company Number: 2005-BP-01003BP

PATIENT
  Age: 67 Year
  Sex: Male

DRUGS (5)
  1. SPIRIVA [Suspect]
     Indication: CHRONIC OBSTRUCTIVE PULMONARY DISEASE
     Dosage: 18 MCG (18 MCG), IH
     Route: 055
  2. ADVAIR DISKUS 100/50 [Suspect]
  3. LISINOPRIL [Concomitant]
  4. CARDURA [Concomitant]
  5. ALBUTEROL [Concomitant]

REACTIONS (4)
  - CATARACT [None]
  - COUGH [None]
  - DRY MOUTH [None]
  - TOOTH DISORDER [None]
